FAERS Safety Report 5881673-3 (Version None)
Quarter: 2008Q3

REPORT INFORMATION
  Report Type: 
  Country: None (occurrence: None)
  Receive Date: 20080912
  Receipt Date: 20080709
  Transmission Date: 20090109
  Serious: No
  Sender: FDA-Public Use
  Company Number: US-ABBOTT-08P-163-0461787-00

PATIENT
  Sex: Female
  Weight: 95.34 kg

DRUGS (7)
  1. HUMIRA [Suspect]
     Indication: PSORIASIS
     Route: 058
     Dates: start: 20080630, end: 20080630
  2. HUMIRA [Suspect]
     Route: 058
     Dates: start: 20080709, end: 20080709
  3. HUMIRA [Suspect]
     Route: 058
     Dates: start: 20080724
  4. HUMIRA [Suspect]
  5. CETIRIZINE HYDROCHLORIDE [Concomitant]
     Indication: SEASONAL ALLERGY
  6. ANTIHYPERTENSIVES [Concomitant]
     Indication: HYPERTENSION
     Route: 048
  7. FOLIC ACID [Concomitant]
     Indication: VITAMIN SUPPLEMENTATION
     Route: 048

REACTIONS (4)
  - ANXIETY [None]
  - CRYING [None]
  - HYPERPHAGIA [None]
  - INJECTION SITE PAIN [None]
